FAERS Safety Report 15961553 (Version 1)
Quarter: 2019Q1

REPORT INFORMATION
  Report Type: Spontaneous
  Country: US (occurrence: US)
  Receive Date: 20190214
  Receipt Date: 20190214
  Transmission Date: 20190417
  Serious: Yes (Life-Threatening, Other)
  Sender: FDA-Public Use
  Company Number: None

PATIENT
  Age: 38 Year
  Sex: Male
  Weight: 66.6 kg

DRUGS (4)
  1. KEPPRA [Suspect]
     Active Substance: LEVETIRACETAM
     Indication: EPILEPSY
     Dosage: QUANTITY:60 TABLET(S); AT BEDTIME?
     Route: 048
     Dates: start: 20190115, end: 20190201
  2. FLONASE [Concomitant]
     Active Substance: FLUTICASONE PROPIONATE
  3. ADVIL [Concomitant]
     Active Substance: IBUPROFEN
  4. TEGRETOL XR [Concomitant]
     Active Substance: CARBAMAZEPINE

REACTIONS (8)
  - Insomnia [None]
  - Hypoaesthesia [None]
  - Personality change [None]
  - Crying [None]
  - Nervousness [None]
  - Mental status changes [None]
  - Anger [None]
  - Violence-related symptom [None]

NARRATIVE: CASE EVENT DATE: 20190115
